FAERS Safety Report 6393425-9 (Version None)
Quarter: 2009Q4

REPORT INFORMATION
  Report Type: 
  Country: None (occurrence: None)
  Receive Date: 20091008
  Receipt Date: 20091005
  Transmission Date: 20100525
  Serious: Yes (Other)
  Sender: FDA-Public Use
  Company Number: JP-BAYER-200913406BYL

PATIENT
  Age: 96 Year
  Sex: Female

DRUGS (2)
  1. ASPIRIN [Suspect]
     Indication: ATRIAL FIBRILLATION
     Route: 048
  2. UNKNOWN DRUG [Concomitant]
     Route: 065

REACTIONS (1)
  - THROMBOCYTOPENIA [None]
